FAERS Safety Report 21088349 (Version 2)
Quarter: 2022Q3

REPORT INFORMATION
  Report Type: Report from Study
  Country: US (occurrence: US)
  Receive Date: 20220715
  Receipt Date: 20220829
  Transmission Date: 20221027
  Serious: No
  Sender: FDA-Public Use
  Company Number: US-SAGE-2022SAGE000063

PATIENT
  Age: 29 Year
  Sex: Female
  Weight: 142 kg

DRUGS (2)
  1. ZULRESSO [Suspect]
     Active Substance: BREXANOLONE
     Indication: Brief psychotic disorder, with postpartum onset
     Dosage: 500 MG, OVER THE COURSE OF 60 HOURS
     Route: 042
     Dates: start: 20220523, end: 20220525
  2. ZYPREXA [Concomitant]
     Active Substance: OLANZAPINE
     Indication: Product used for unknown indication
     Dosage: 5 MG
     Route: 065

REACTIONS (1)
  - Off label use [Unknown]

NARRATIVE: CASE EVENT DATE: 20220523
